FAERS Safety Report 9935453 (Version 1)
Quarter: 2014Q1

REPORT INFORMATION
  Report Type: Spontaneous
  Country: US (occurrence: US)
  Receive Date: 20140228
  Receipt Date: 20140228
  Transmission Date: 20141002
  Serious: No
  Sender: FDA-Public Use
  Company Number: US-PFIZER INC-2014055780

PATIENT
  Age: 53 Year
  Sex: Female

DRUGS (1)
  1. ZITHROMAX [Suspect]
     Dosage: UNK

REACTIONS (1)
  - Drug hypersensitivity [Unknown]
